FAERS Safety Report 20752040 (Version 8)
Quarter: 2023Q2

REPORT INFORMATION
  Report Type: Report from Study
  Country: US (occurrence: US)
  Receive Date: 20220426
  Receipt Date: 20230614
  Transmission Date: 20230722
  Serious: Yes (Death, Life-Threatening, Hospitalization, Other)
  Sender: FDA-Public Use
  Company Number: US-BRISTOL-MYERS SQUIBB COMPANY-2022-026318

PATIENT
  Age: 62 Year
  Sex: Female
  Weight: 94.9 kg

DRUGS (7)
  1. SYNTEST HS [Concomitant]
     Indication: Hysterectomy
     Dosage: 1 DOSAGE FORM = 1.25-2.5 MG
     Route: 047
     Dates: start: 1984, end: 20220408
  2. AMBIEN [Concomitant]
     Active Substance: ZOLPIDEM TARTRATE
     Indication: Anxiety
     Dosage: FREQUENCY: HS PRN
     Route: 048
     Dates: start: 2002
  3. TYLENOL [Concomitant]
     Active Substance: ACETAMINOPHEN
     Indication: Patellofemoral pain syndrome
     Dosage: FREQUENCY: PRN
     Route: 048
     Dates: start: 1985
  4. CLARITIN [Concomitant]
     Active Substance: LORATADINE
     Indication: Seasonal allergy
     Dosage: FREQUENCY: PRN
     Route: 048
     Dates: start: 20170601
  5. SYNTHROID [Concomitant]
     Active Substance: LEVOTHYROXINE SODIUM
     Indication: Autoimmune thyroiditis
     Route: 048
     Dates: start: 20170906
  6. ADVIL [Concomitant]
     Active Substance: IBUPROFEN
     Indication: Arthralgia
     Dosage: FREQUENCY: AS NEEDED
     Route: 048
     Dates: start: 20181101
  7. FLUOCINONIDE [Concomitant]
     Active Substance: FLUOCINONIDE
     Indication: Eczema
     Dosage: 1 DOSAGE FORM = 1 APPLICATION?FREQUENCY: AS NEEDED
     Route: 061
     Dates: start: 201807

REACTIONS (3)
  - Adenocarcinoma pancreas [Fatal]
  - Pulmonary embolism [Not Recovered/Not Resolved]
  - Deep vein thrombosis [Not Recovered/Not Resolved]

NARRATIVE: CASE EVENT DATE: 20220408
